FAERS Safety Report 6148695-9 (Version None)
Quarter: 2009Q2

REPORT INFORMATION
  Report Type: 
  Country: None (occurrence: None)
  Receive Date: 20090406
  Receipt Date: 20090406
  Transmission Date: 20091009
  Serious: Yes (Other)
  Sender: FDA-Public Use
  Company Number: None

PATIENT
  Age: 24 Year
  Sex: Female
  Weight: 54.5 kg

DRUGS (3)
  1. OMNIPAQUE 300 [Suspect]
     Indication: COMPUTERISED TOMOGRAM ABDOMEN
     Dosage: 125 ML
     Dates: start: 20090401, end: 20090401
  2. OMNIPAQUE 300 [Suspect]
     Indication: NAUSEA
     Dosage: 125 ML
     Dates: start: 20090401, end: 20090401
  3. OMNIPAQUE 300 [Suspect]
     Indication: VOMITING
     Dosage: 125 ML
     Dates: start: 20090401, end: 20090401

REACTIONS (3)
  - PRURITUS [None]
  - RASH GENERALISED [None]
  - RASH MACULAR [None]
